FAERS Safety Report 6168588-0 (Version None)
Quarter: 2009Q2

REPORT INFORMATION
  Report Type: 
  Country: None (occurrence: None)
  Receive Date: 20090423
  Receipt Date: 20090414
  Transmission Date: 20091009
  Serious: Yes (Death, Hospitalization, Other)
  Sender: FDA-Public Use
  Company Number: A-US2008-21379

PATIENT
  Age: 22 Year
  Sex: Female
  Weight: 29.4 kg

DRUGS (9)
  1. TRACLEER [Suspect]
     Indication: PULMONARY ARTERIAL HYPERTENSION
     Dosage: 62.5 MG, BID, ORAL ; 31.25 MG, BID, ORAL ; 31.25 MG, BID, ORAL
     Route: 048
     Dates: start: 20080625, end: 20081117
  2. TRACLEER [Suspect]
     Indication: PULMONARY ARTERIAL HYPERTENSION
     Dosage: 62.5 MG, BID, ORAL ; 31.25 MG, BID, ORAL ; 31.25 MG, BID, ORAL
     Route: 048
     Dates: start: 20081118, end: 20090210
  3. TRACLEER [Suspect]
     Indication: PULMONARY ARTERIAL HYPERTENSION
     Dosage: 62.5 MG, BID, ORAL ; 31.25 MG, BID, ORAL ; 31.25 MG, BID, ORAL
     Route: 048
     Dates: start: 20090211
  4. SPIRONOLACTONE [Concomitant]
  5. REVATIO [Concomitant]
  6. POTASSIUM CHLORIDE [Concomitant]
  7. ASPIRIN [Concomitant]
  8. LASIX [Concomitant]
  9. DIURIL (CHLOROTHIAZIDE) [Concomitant]

REACTIONS (15)
  - ABDOMINAL DISTENSION [None]
  - ALANINE AMINOTRANSFERASE INCREASED [None]
  - ASPARTATE AMINOTRANSFERASE INCREASED [None]
  - BLOOD BILIRUBIN INCREASED [None]
  - CARDIAC FAILURE CONGESTIVE [None]
  - DEATH [None]
  - DEHYDRATION [None]
  - HEPATIC CONGESTION [None]
  - LIVER FUNCTION TEST ABNORMAL [None]
  - METABOLIC ALKALOSIS [None]
  - OEDEMA PERIPHERAL [None]
  - PNEUMONIA [None]
  - PRURITUS GENERALISED [None]
  - RASH GENERALISED [None]
  - RIGHT VENTRICULAR FAILURE [None]
